FAERS Safety Report 20043438 (Version 10)
Quarter: 2022Q3

REPORT INFORMATION
  Report Type: Report from Study
  Country: US (occurrence: US)
  Receive Date: 20211108
  Receipt Date: 20220923
  Transmission Date: 20221027
  Serious: Yes (Other)
  Sender: FDA-Public Use
  Company Number: US-NOVARTISTESTPH-NVSC2021US253779

PATIENT
  Age: 61 Year
  Sex: Female

DRUGS (1)
  1. ENTRESTO [Suspect]
     Active Substance: SACUBITRIL\VALSARTAN
     Indication: Cardiac failure
     Dosage: 1 DOSAGE FORM, BID
     Route: 048
     Dates: start: 20210924

REACTIONS (13)
  - Rheumatoid arthritis [Not Recovered/Not Resolved]
  - Pain in extremity [Recovering/Resolving]
  - Arthralgia [Not Recovered/Not Resolved]
  - Pain [Not Recovered/Not Resolved]
  - Glycosylated haemoglobin decreased [Recovering/Resolving]
  - Arthritis [Not Recovered/Not Resolved]
  - Therapeutic response unexpected [Recovering/Resolving]
  - Weight bearing difficulty [Not Recovered/Not Resolved]
  - Vomiting [Recovered/Resolved]
  - Fluid retention [Unknown]
  - Peripheral swelling [Recovered/Resolved]
  - Weight decreased [Recovering/Resolving]
  - Hip deformity [Not Recovered/Not Resolved]

NARRATIVE: CASE EVENT DATE: 20210901
